FAERS Safety Report 7325646-2 (Version None)
Quarter: 2011Q1

REPORT INFORMATION
  Report Type: 
  Country: None (occurrence: None)
  Receive Date: 20110302
  Receipt Date: 20110222
  Transmission Date: 20110831
  Serious: Yes (Other)
  Sender: FDA-Public Use
  Company Number: AR-PFIZER INC-2011040832

PATIENT
  Sex: Female

DRUGS (1)
  1. RAPAMUNE [Suspect]
     Dosage: UNK
     Route: 065
     Dates: end: 20101001

REACTIONS (1)
  - HERNIA [None]
